FAERS Safety Report 10438460 (Version 1)
Quarter: 2014Q3

REPORT INFORMATION
  Report Type: Spontaneous
  Country: DK (occurrence: DK)
  Receive Date: 20140908
  Receipt Date: 20140908
  Transmission Date: 20150326
  Serious: Yes (Disabling)
  Sender: FDA-Public Use
  Company Number: DK-GLAXOSMITHKLINE-B1029471A

PATIENT
  Age: 27 Year
  Sex: Female

DRUGS (5)
  1. FLIXOTIDE [Suspect]
     Active Substance: FLUTICASONE PROPIONATE
     Indication: ASTHMA
     Dosage: 1000MG TWICE PER DAY
     Route: 055
     Dates: start: 20021127, end: 201301
  2. AERIUS [Concomitant]
     Active Substance: DESLORATADINE
     Dates: start: 20040329
  3. RHINOCORT TURBUHALER [Concomitant]
     Active Substance: BUDESONIDE
     Indication: ASTHMA
     Route: 045
     Dates: start: 20021127
  4. DIPROSPAN [Concomitant]
     Active Substance: BETAMETHASONE DIPROPIONATE\BETAMETHASONE SODIUM PHOSPHATE
     Dates: start: 20040419, end: 20040702
  5. PULMICORT TURBUHALER [Suspect]
     Active Substance: BUDESONIDE
     Indication: ASTHMA
     Dosage: 400MG THREE TIMES PER DAY
     Route: 055
     Dates: start: 20040429

REACTIONS (7)
  - Nausea [Unknown]
  - Headache [Unknown]
  - Disturbance in attention [Unknown]
  - Muscular weakness [Unknown]
  - Fatigue [Unknown]
  - Adrenal insufficiency [Not Recovered/Not Resolved]
  - Dizziness [Unknown]

NARRATIVE: CASE EVENT DATE: 201301
